FAERS Safety Report 16644144 (Version 2)
Quarter: 2019Q3

REPORT INFORMATION
  Report Type: Report from Study
  Country: BR (occurrence: BR)
  Receive Date: 20190729
  Receipt Date: 20190816
  Transmission Date: 20191004
  Serious: Yes (Death, Hospitalization)
  Sender: FDA-Public Use
  Company Number: PHHY2019BR175403

PATIENT
  Age: 89 Year
  Sex: Female
  Weight: 67 kg

DRUGS (1)
  1. DIOVAN AMLO [Suspect]
     Active Substance: AMLODIPINE\VALSARTAN
     Indication: HYPERTENSION
     Dosage: 1 DF (AMLODIPINE 5 MG, VALSARTAN 160 MG), QD
     Route: 048

REACTIONS (6)
  - Dizziness [Fatal]
  - Stenosis [Fatal]
  - Myocardial infarction [Fatal]
  - Chest pain [Fatal]
  - Blood pressure increased [Fatal]
  - Dyspnoea [Fatal]

NARRATIVE: CASE EVENT DATE: 20190205
